FAERS Safety Report 8869413 (Version 1)
Quarter: 2012Q4

REPORT INFORMATION
  Report Type: 
  Country: US (occurrence: US)
  Receive Date: 20121023
  Receipt Date: 20121023
  Transmission Date: 20130627
  Serious: No
  Sender: FDA-Public Use
  Company Number: US-AMGEN-USASP2012048798

PATIENT
  Age: 50 Year
  Sex: Female

DRUGS (4)
  1. ENBREL [Suspect]
     Indication: RHEUMATOID ARTHRITIS
     Dosage: UNK
     Dates: start: 20120401, end: 20120421
  2. FOLIC ACID [Concomitant]
     Dosage: UNK
  3. MULTIVITAMIN                       /00097801/ [Concomitant]
     Dosage: UNK
  4. VITAMIN D3 [Concomitant]
     Dosage: UNK

REACTIONS (2)
  - Hypersensitivity [Unknown]
  - Rash [Unknown]
